FAERS Safety Report 6506720-7 (Version None)
Quarter: 2009Q4

REPORT INFORMATION
  Report Type: 
  Country: None (occurrence: None)
  Receive Date: 20091221
  Receipt Date: 20091215
  Transmission Date: 20100525
  Serious: Yes (Hospitalization)
  Sender: FDA-Public Use
  Company Number: FR-ROCHE-674990

PATIENT
  Age: 51 Year
  Sex: Male

DRUGS (2)
  1. PEGASYS [Suspect]
     Route: 058
     Dates: start: 20090519, end: 20090523
  2. RIBAVIRIN [Concomitant]

REACTIONS (3)
  - NAUSEA [None]
  - NEUROSENSORY HYPOACUSIS [None]
  - VERTIGO [None]
